FAERS Safety Report 19235149 (Version 2)
Quarter: 2022Q3

REPORT INFORMATION
  Report Type: Spontaneous
  Country: US (occurrence: US)
  Receive Date: 20210509
  Receipt Date: 20220918
  Transmission Date: 20221027
  Serious: No
  Sender: FDA-Public Use
  Company Number: US-JNJFOC-20210511427

PATIENT
  Age: 1 Decade
  Sex: Male

DRUGS (6)
  1. RISPERDAL [Suspect]
     Active Substance: RISPERIDONE
     Indication: Attention deficit hyperactivity disorder
     Route: 048
  2. RISPERDAL [Suspect]
     Active Substance: RISPERIDONE
     Indication: Oppositional defiant disorder
  3. RISPERDAL [Suspect]
     Active Substance: RISPERIDONE
     Indication: Behaviour disorder
  4. RISPERIDONE [Suspect]
     Active Substance: RISPERIDONE
     Indication: Behaviour disorder
     Route: 048
     Dates: start: 2010, end: 2013
  5. RISPERIDONE [Suspect]
     Active Substance: RISPERIDONE
     Indication: Attention deficit hyperactivity disorder
  6. RISPERIDONE [Suspect]
     Active Substance: RISPERIDONE
     Indication: Oppositional defiant disorder

REACTIONS (4)
  - Emotional disorder [Unknown]
  - Gynaecomastia [Unknown]
  - Somnolence [Unknown]
  - Weight increased [Unknown]

NARRATIVE: CASE EVENT DATE: 20110101
